FAERS Safety Report 6174111-7 (Version None)
Quarter: 2009Q2

REPORT INFORMATION
  Report Type: 
  Country: None (occurrence: None)
  Receive Date: 20090430
  Receipt Date: 20090422
  Transmission Date: 20091009
  Serious: Yes (Other)
  Sender: FDA-Public Use
  Company Number: PHEH2008US08808

PATIENT
  Sex: Female

DRUGS (5)
  1. AREDIA [Suspect]
  2. ZOMETA [Suspect]
  3. LEVOTHYROXINE SODIUM [Concomitant]
  4. IBUPROFEN [Concomitant]
  5. WELLBUTRIN [Concomitant]

REACTIONS (19)
  - ABSCESS DRAINAGE [None]
  - ANHEDONIA [None]
  - ANXIETY [None]
  - DISABILITY [None]
  - EXOSTOSIS [None]
  - GINGIVAL DISORDER [None]
  - INFECTION [None]
  - INJURY [None]
  - JAW DISORDER [None]
  - MASTICATION DISORDER [None]
  - MEDICAL DEVICE REMOVAL [None]
  - MUSCULOSKELETAL PAIN [None]
  - NEOPLASM [None]
  - NEURECTOMY [None]
  - NEUROMA [None]
  - OSTEONECROSIS [None]
  - PAIN [None]
  - TOOTH REPAIR [None]
  - TUMOUR EXCISION [None]
